FAERS Safety Report 15195903 (Version 1)
Quarter: 2018Q3

REPORT INFORMATION
  Report Type: Spontaneous
  Country: US (occurrence: US)
  Receive Date: 20180725
  Receipt Date: 20180725
  Transmission Date: 20181010
  Serious: No
  Sender: FDA-Public Use
  Company Number: US-PFIZER INC-2018298205

PATIENT
  Age: 45 Year
  Sex: Female

DRUGS (1)
  1. DEMEROL [Suspect]
     Active Substance: MEPERIDINE HYDROCHLORIDE
     Dosage: UNK

REACTIONS (5)
  - Diarrhoea [Unknown]
  - Nausea [Unknown]
  - Drug hypersensitivity [Unknown]
  - Vomiting [Unknown]
  - Dyspnoea [Unknown]
